FAERS Safety Report 8178042-2 (Version None)
Quarter: 2012Q1

REPORT INFORMATION
  Report Type: 
  Country: None (occurrence: None)
  Receive Date: 20120301
  Receipt Date: 20120220
  Transmission Date: 20120608
  Serious: Yes (Hospitalization)
  Sender: FDA-Public Use
  Company Number: FR-BRISTOL-MYERS SQUIBB COMPANY-16408593

PATIENT
  Age: 95 Year
  Sex: Female

DRUGS (5)
  1. ACETAMINOPHEN [Concomitant]
  2. COUMADIN [Suspect]
     Indication: PULMONARY EMBOLISM
     Dates: start: 20110601
  3. AUGMENTIN '125' [Suspect]
     Indication: LUNG DISORDER
     Route: 048
     Dates: start: 20110819
  4. ISOSORBIDE MONONITRATE [Concomitant]
  5. ISOPTIN [Concomitant]

REACTIONS (5)
  - RESPIRATORY TRACT CONGESTION [None]
  - DEHYDRATION [None]
  - ANAEMIA [None]
  - INTERNATIONAL NORMALISED RATIO INCREASED [None]
  - GENERAL PHYSICAL HEALTH DETERIORATION [None]
